FAERS Safety Report 13720810 (Version 3)
Quarter: 2017Q3

REPORT INFORMATION
  Report Type: Report from Study
  Country: US (occurrence: US)
  Receive Date: 20170706
  Receipt Date: 20170727
  Transmission Date: 20171127
  Serious: No
  Sender: FDA-Public Use
  Company Number: US-AMGEN-USASL2017100029

PATIENT
  Sex: Male

DRUGS (1)
  1. ENBREL [Suspect]
     Active Substance: ETANERCEPT
     Indication: ANKYLOSING SPONDYLITIS
     Dosage: 50 MG, QWK
     Route: 065

REACTIONS (7)
  - Back pain [Recovering/Resolving]
  - Arthralgia [Unknown]
  - Musculoskeletal pain [Unknown]
  - Rash [Unknown]
  - Swelling face [Unknown]
  - Influenza [Unknown]
  - Injection site rash [Unknown]
